FAERS Safety Report 21390114 (Version 7)
Quarter: 2022Q4

REPORT INFORMATION
  Report Type: Report from Study
  Country: IN (occurrence: IN)
  Receive Date: 20220929
  Receipt Date: 20221025
  Transmission Date: 20230112
  Serious: Yes (Life-Threatening, Hospitalization, Other)
  Sender: FDA-Public Use
  Company Number: IN-AMGEN-INDCT2022167392

PATIENT
  Age: 66 Year
  Sex: Male
  Weight: 44 kg

DRUGS (13)
  1. CARFILZOMIB [Suspect]
     Active Substance: CARFILZOMIB
     Indication: Plasma cell myeloma
     Dosage: 78 MILLIGRAM
     Route: 040
     Dates: start: 20220125
  2. DEXAMETHASONE [Concomitant]
     Active Substance: DEXAMETHASONE
     Dosage: 6-20 MILLIGRAM
     Dates: start: 20220125, end: 20220921
  3. Septran ds [Concomitant]
     Dosage: 800 MILLIGRAM
     Route: 048
     Dates: start: 20220125, end: 20220926
  4. INSULIN NOS [Concomitant]
     Active Substance: INSULIN NOS
     Dosage: 26 UNK
     Route: 058
     Dates: start: 20220419
  5. VITAMIN E [Concomitant]
     Active Substance: .ALPHA.-TOCOPHEROL
     Dosage: 200 MILLIGRAM
     Route: 048
     Dates: start: 20220615, end: 20220926
  6. ETOFYLLINE\THEOPHYLLINE [Concomitant]
     Active Substance: ETOFYLLINE\THEOPHYLLINE
     Dosage: 150 MILLIGRAM
     Route: 048
     Dates: start: 20220713, end: 20220926
  7. ONDANSETRON [Concomitant]
     Active Substance: ONDANSETRON
     Dosage: 8 MILLIGRAM
     Route: 042
     Dates: start: 20220125
  8. CALCIUM [Concomitant]
     Active Substance: CALCIUM
     Dosage: 500 MILLIGRAM
     Route: 048
     Dates: start: 20220713
  9. TENELIGLIPTIN [Concomitant]
     Active Substance: TENELIGLIPTIN
     Dosage: 20 MILLIGRAM
     Route: 048
     Dates: start: 20210605
  10. ROSUVASTATIN [Concomitant]
     Active Substance: ROSUVASTATIN
     Dosage: 5 MILLIGRAM
     Route: 048
     Dates: start: 20190807
  11. NEBI AM [Concomitant]
     Dosage: 10 MILLIGRAM
     Route: 048
     Dates: start: 20210605
  12. ACYCLOVIR [Concomitant]
     Active Substance: ACYCLOVIR
     Dosage: 400 MILLIGRAM
     Dates: start: 20220125
  13. PANTOPRAZOLE [Concomitant]
     Active Substance: PANTOPRAZOLE
     Dosage: 40 MILLIGRAM
     Dates: start: 20220125

REACTIONS (1)
  - Pneumonia [Recovered/Resolved]

NARRATIVE: CASE EVENT DATE: 20220925
